FAERS Safety Report 8769713 (Version 1)
Quarter: 2012Q4

REPORT INFORMATION
  Report Type: 
  Country: US (occurrence: US)
  Receive Date: 20120905
  Receipt Date: 20120905
  Transmission Date: 20130627
  Serious: No
  Sender: FDA-Public Use
  Company Number: US-B.I. PHARMACEUTICALS,INC./RIDGEFIELD-2012-BP-21049BP

PATIENT
  Age: 60 Year
  Sex: Female
  Weight: 100 kg

DRUGS (20)
  1. SPIRIVA [Suspect]
     Indication: CHRONIC OBSTRUCTIVE PULMONARY DISEASE
     Dosage: 18 mcg
     Route: 055
     Dates: start: 201206
  2. SPIRIVA [Suspect]
     Route: 048
     Dates: start: 20120828, end: 20120828
  3. ADVAIR [Concomitant]
     Indication: CHRONIC OBSTRUCTIVE PULMONARY DISEASE
     Route: 055
     Dates: start: 201201
  4. VERAPAMIL [Concomitant]
     Dosage: 240 mg
     Route: 048
     Dates: start: 2007
  5. METHOTREXATE [Concomitant]
     Indication: ARTHRITIS
     Dosage: 25 mg
     Route: 048
     Dates: start: 2010
  6. SIMVASTATIN [Concomitant]
     Indication: BLOOD CHOLESTEROL ABNORMAL
     Dosage: 40 mg
     Route: 048
     Dates: start: 2003
  7. METFORMIN [Concomitant]
     Indication: DIABETES MELLITUS
     Dosage: 1500 mg
     Route: 048
     Dates: start: 2003
  8. METHIMAZOLE [Concomitant]
     Indication: THYROID DISORDER
     Dosage: 5 mg
     Route: 048
     Dates: start: 2010
  9. BUPROPION [Concomitant]
     Indication: DEPRESSION
     Dosage: 150 mg
     Route: 048
     Dates: start: 2010
  10. DICLOSENAC [Concomitant]
     Indication: ARTHRITIS
     Dosage: 150 mg
     Route: 048
     Dates: start: 2007
  11. VENLASAXINE [Concomitant]
     Indication: BLOOD PRESSURE ABNORMAL
     Dosage: 225 mg
     Route: 048
     Dates: start: 2002
  12. HYDROCHLOROTHIAZIDE [Concomitant]
     Indication: BLOOD PRESSURE ABNORMAL
     Dosage: 12.5 mg
     Route: 048
     Dates: start: 2002
  13. HYDROXYCHLOROQUINE [Concomitant]
     Indication: ARTHRITIS
     Dosage: 400 mg
     Route: 048
     Dates: start: 2007
  14. FOSINOPRIL [Concomitant]
     Indication: BLOOD PRESSURE ABNORMAL
     Dosage: 40 mg
     Route: 048
     Dates: start: 2004
  15. ALENDRONATE [Concomitant]
     Indication: BONE DISORDER
     Dosage: 10 mg
     Route: 048
  16. PREDNISONE [Concomitant]
     Indication: ARTHRITIS
     Route: 048
     Dates: start: 2007
  17. BABY ASPIRIN [Concomitant]
     Indication: CARDIAC DISORDER
     Dosage: 81 mg
     Route: 048
     Dates: start: 2012
  18. B12 [Concomitant]
     Indication: SUPPLEMENTATION THERAPY
     Dosage: 1000 mg
     Route: 048
     Dates: start: 2006
  19. MULTIVITAMIN [Concomitant]
     Indication: SUPPLEMENTATION THERAPY
     Route: 048
     Dates: start: 2002
  20. LUNESTA [Concomitant]
     Indication: SLEEP DISORDER
     Dosage: 3 mg
     Route: 048
     Dates: start: 2006

REACTIONS (1)
  - Incorrect route of drug administration [Recovered/Resolved]
